FAERS Safety Report 16646109 (Version 1)
Quarter: 2019Q3

REPORT INFORMATION
  Report Type: Spontaneous
  Country: US (occurrence: US)
  Receive Date: 20190730
  Receipt Date: 20190730
  Transmission Date: 20191004
  Serious: No
  Sender: FDA-Public Use
  Company Number: US-GLENMARK PHARMACEUTICALS-2019GMK039513

PATIENT

DRUGS (5)
  1. LOSARTAN. [Concomitant]
     Active Substance: LOSARTAN
     Indication: HYPERTENSION
     Dosage: 1 DF, OD
     Route: 065
  2. MUPIROCIN OINTMENT USP, 2% [Suspect]
     Active Substance: MUPIROCIN
     Indication: SKIN CANCER
     Dosage: UNK, TID
     Route: 061
     Dates: start: 20190119
  3. GABAPENTIN. [Concomitant]
     Active Substance: GABAPENTIN
     Indication: COUGH
     Dosage: 2 DF, TID
     Route: 065
  4. PREDNISONE. [Concomitant]
     Active Substance: PREDNISONE
     Indication: COUGH
     Dosage: 1 DF, (FRIDAY TO THURSDAY)
     Route: 065
  5. DOXYCYCLINE. [Concomitant]
     Active Substance: DOXYCYCLINE
     Indication: ANTIBIOTIC THERAPY
     Dosage: 1 DF, BID (1 TABLET 2 TIMES A DAY)
     Route: 065

REACTIONS (2)
  - Application site pain [Recovering/Resolving]
  - Product use in unapproved indication [Unknown]
